FAERS Safety Report 16724750 (Version 1)
Quarter: 2019Q4

REPORT INFORMATION
  Report Type: Spontaneous
  Country: US (occurrence: US)
  Receive Date: 20190820
  Receipt Date: 20190820
  Transmission Date: 20200122
  Serious: Yes (Hospitalization)
  Sender: FDA-Public Use
  Company Number: None

PATIENT
  Age: 84 Year
  Sex: Female
  Weight: 50.4 kg

DRUGS (1)
  1. CAPECITABINE. [Suspect]
     Active Substance: CAPECITABINE
     Indication: BREAST CANCER
     Dosage: ?          OTHER FREQUENCY:2 BID X7D, 7D OFF.;?
     Route: 048
     Dates: start: 20190109

REACTIONS (5)
  - Swelling face [None]
  - Swelling [None]
  - Infection [None]
  - Erythema [None]
  - Pruritus [None]

NARRATIVE: CASE EVENT DATE: 20190811
